FAERS Safety Report 8525440 (Version 3)
Quarter: 2012Q4

REPORT INFORMATION
  Report Type: 
  Country: CA (occurrence: CA)
  Receive Date: 20120423
  Receipt Date: 20120926
  Transmission Date: 20130627
  Serious: Yes (Hospitalization)
  Sender: FDA-Public Use
  Company Number: CA-JNJFOC-20120406118

PATIENT
  Age: 27 None
  Sex: Female
  Weight: 55.9 kg

DRUGS (2)
  1. REMICADE [Suspect]
     Indication: COLITIS ULCERATIVE
     Route: 042
     Dates: start: 20120330
  2. REMICADE [Suspect]
     Indication: COLITIS ULCERATIVE
     Dosage: conflictingly reported as once in every 6 weeks
     Route: 042
     Dates: start: 20120510

REACTIONS (4)
  - Hospitalisation [Unknown]
  - Procedural pain [Unknown]
  - Premature labour [Recovered/Resolved]
  - Exposure during pregnancy [Recovered/Resolved]
